FAERS Safety Report 18257074 (Version 2)
Quarter: 2020Q4

REPORT INFORMATION
  Report Type: Other
  Country: DE (occurrence: DE)
  Receive Date: 20200911
  Receipt Date: 20201007
  Transmission Date: 20210113
  Serious: Yes (Other)
  Sender: FDA-Public Use
  Company Number: DE-ROCHE-2673742

PATIENT

DRUGS (4)
  1. METHYLPREDNISOLONE. [Concomitant]
     Active Substance: METHYLPREDNISOLONE
     Route: 042
  2. ABP-798. [Suspect]
     Active Substance: ABP-798
     Indication: RHEUMATOID ARTHRITIS
     Dosage: ON DAYS 1 AND 15 (DOSE 1) AND A SECOND DOSE OF ABP 798 AT WEEKS 24 AND 26 (DOSE 2).
     Route: 042
  3. ACETAMINOPHEN. [Concomitant]
     Active Substance: ACETAMINOPHEN
  4. RITUXIMAB. [Suspect]
     Active Substance: RITUXIMAB
     Indication: RHEUMATOID ARTHRITIS
     Dosage: FOR RITUXIMAB US:  ON DAYS 1 AND 15 (DOSE 1) AND TRANSITIONED TO RECEIVE ABP 798 AT WEEKS 24 AND 26
     Route: 041

REACTIONS (10)
  - Acute myocardial infarction [Unknown]
  - Infusion related reaction [Unknown]
  - Opportunistic infection [Unknown]
  - Back pain [Unknown]
  - Pneumonia [Unknown]
  - Urinary tract infection [Unknown]
  - Lymphopenia [Unknown]
  - Anaemia [Unknown]
  - Cardiac disorder [Unknown]
  - Infection [Unknown]
